FAERS Safety Report 9128058 (Version 1)
Quarter: 2013Q1

REPORT INFORMATION
  Report Type: Other
  Country: US (occurrence: US)
  Receive Date: 20130125
  Receipt Date: 20130125
  Transmission Date: 20140127
  Serious: Yes (Death)
  Sender: FDA-Public Use
  Company Number: US-FRI-1000042024

PATIENT
  Age: 15 Year
  Sex: Female

DRUGS (7)
  1. LEVOTHROID [Suspect]
  2. METHADONE [Suspect]
  3. SERTRALINE [Suspect]
  4. BACLOFEN [Suspect]
  5. ONDANSETRON [Suspect]
  6. ACETAMINOPHEN\HYDROCODONE [Suspect]
  7. IBUPROFEN [Suspect]

REACTIONS (2)
  - Completed suicide [Fatal]
  - Cardio-respiratory arrest [Fatal]
